FAERS Safety Report 4359585-6 (Version None)
Quarter: 2004Q2

REPORT INFORMATION
  Report Type: 
  Country: None (occurrence: None)
  Receive Date: 20040518
  Receipt Date: 20040507
  Transmission Date: 20050107
  Serious: Yes (Hospitalization, Other)
  Sender: FDA-Public Use
  Company Number: CA-AMGEN-US075781

PATIENT
  Sex: Male
  Weight: 37 kg

DRUGS (17)
  1. ARANESP [Suspect]
     Indication: DIALYSIS
     Route: 058
     Dates: start: 20031111, end: 20040506
  2. EPREX [Suspect]
     Route: 058
     Dates: start: 19980207, end: 20031111
  3. CAPOTEN [Suspect]
     Dates: start: 20040420
  4. TEGRETOL [Suspect]
     Dates: start: 20030617
  5. ASPIRIN [Concomitant]
     Dates: start: 20031204
  6. PANTOLOC [Concomitant]
     Dates: start: 20030916
  7. RENAGEL [Concomitant]
     Dates: start: 20030301
  8. RESTORIL [Concomitant]
     Dates: start: 20020730
  9. TIAZAC [Concomitant]
     Dates: start: 20040420
  10. VITAMIN B-12 [Concomitant]
     Dates: start: 20020730
  11. VENTOLIN [Concomitant]
     Dates: start: 20020224
  12. FLOVENT [Concomitant]
     Dates: start: 20020730
  13. SEREVENT [Concomitant]
     Dates: start: 20040420
  14. TYLENOL [Concomitant]
     Dates: start: 20001022
  15. QUININE [Concomitant]
     Dates: start: 20020730
  16. MAGNESIUM SULFATE [Concomitant]
     Dates: start: 20000831
  17. BLOOD CELLS, PACKED HUMAN [Concomitant]
     Dates: start: 20020101

REACTIONS (2)
  - HOSPITALISATION [None]
  - LUNG INFECTION [None]
